FAERS Safety Report 5075245-0 (Version None)
Quarter: 2006Q3

REPORT INFORMATION
  Report Type: 
  Country: None (occurrence: None)
  Receive Date: 20060807
  Receipt Date: 20060807
  Transmission Date: 20061208
  Serious: No
  Sender: FDA-Public Use
  Company Number: None

PATIENT
  Age: 57 Year
  Sex: Female
  Weight: 91.173 kg

DRUGS (1)
  1. LEVAQUIN [Suspect]
     Indication: PREOPERATIVE CARE
     Dosage: 500MG IV
     Route: 042
     Dates: start: 20060614

REACTIONS (2)
  - INFUSION RELATED REACTION [None]
  - PRURITUS [None]
